FAERS Safety Report 8414688-1 (Version None)
Quarter: 2012Q2

REPORT INFORMATION
  Report Type: 
  Country: None (occurrence: None)
  Receive Date: 20120605
  Receipt Date: 20120529
  Transmission Date: 20120825
  Serious: Yes (Hospitalization)
  Sender: FDA-Public Use
  Company Number: FR-MERCK-1203USA01986

PATIENT
  Age: 21 Year
  Sex: Male

DRUGS (9)
  1. RIFAMPIN [Concomitant]
     Route: 065
     Dates: start: 20111229, end: 20120106
  2. VITAMIN D [Concomitant]
     Indication: VITAMIN D DEFICIENCY
     Route: 065
  3. COLIMYCIN [Concomitant]
     Route: 065
     Dates: start: 20111229, end: 20120106
  4. VANCOMYCIN [Suspect]
     Indication: INFECTION
     Route: 065
     Dates: start: 20111208, end: 20120107
  5. AMIKACIN [Suspect]
     Indication: INFECTION
     Route: 065
     Dates: start: 20111216, end: 20111228
  6. TRAMADOL HCL [Suspect]
     Indication: ANALGESIC INTERVENTION SUPPORTIVE THERAPY
     Route: 065
  7. FERROUS SULFATE TAB [Concomitant]
     Indication: IRON DEFICIENCY ANAEMIA
     Route: 065
  8. PRIMAXIN [Suspect]
     Indication: INFECTION
     Route: 065
     Dates: start: 20111208, end: 20120106
  9. IMOVANE [Concomitant]
     Indication: INSOMNIA
     Route: 065

REACTIONS (1)
  - DRUG RASH WITH EOSINOPHILIA AND SYSTEMIC SYMPTOMS [None]
